FAERS Safety Report 9455721 (Version 2)
Quarter: 2013Q3

REPORT INFORMATION
  Report Type: Spontaneous
  Country: CA (occurrence: CA)
  Receive Date: 20130813
  Receipt Date: 20130919
  Transmission Date: 20140515
  Serious: Yes (Other)
  Sender: FDA-Public Use
  Company Number: CA-SANOFI-AVENTIS-2013SA079833

PATIENT
  Age: 40 Year
  Sex: Female
  Weight: 64 kg

DRUGS (2)
  1. CYCLOMEN [Suspect]
     Indication: ENDOMETRIOSIS
     Route: 030
     Dates: start: 201212
  2. CYCLOMEN [Suspect]
     Indication: ENDOMETRIOSIS
     Route: 030
     Dates: start: 201303

REACTIONS (2)
  - Trigeminal neuralgia [Unknown]
  - Pain [Recovered/Resolved]
